FAERS Safety Report 13902324 (Version 1)
Quarter: 2017Q3

REPORT INFORMATION
  Report Type: Spontaneous
  Country: US (occurrence: US)
  Receive Date: 20170824
  Receipt Date: 20170824
  Transmission Date: 20171127
  Serious: No
  Sender: FDA-Public Use
  Company Number: US-ROCHE-1037829

PATIENT
  Sex: Female

DRUGS (2)
  1. CHEMOTHERAPY (UNK INGREDIENTS) [Concomitant]
  2. HERCEPTIN [Suspect]
     Active Substance: TRASTUZUMAB
     Indication: BREAST CANCER
     Route: 042

REACTIONS (7)
  - Headache [Unknown]
  - Unevaluable event [Unknown]
  - Arthralgia [Unknown]
  - Joint stiffness [Unknown]
  - Influenza [Unknown]
  - Pain [Recovered/Resolved]
  - Fatigue [Unknown]
